FAERS Safety Report 4511403-9 (Version None)
Quarter: 2004Q4

REPORT INFORMATION
  Report Type: 
  Country: None (occurrence: None)
  Receive Date: 20041129
  Receipt Date: 20040709
  Transmission Date: 20050328
  Serious: No
  Sender: FDA-Public Use
  Company Number: US-BRISTOL-MYERS SQUIBB COMPANY-12636924

PATIENT
  Age: 51 Year
  Sex: Female

DRUGS (7)
  1. ABILIFY [Suspect]
     Indication: SCHIZOAFFECTIVE DISORDER
     Dosage: 5 MG QD STARTED 30-JAN-04
     Route: 048
     Dates: start: 20040130
  2. GEODON [Concomitant]
     Dosage: TAPER COMPLETED 03-AUG-04
     Dates: end: 20040803
  3. ZOLOFT [Concomitant]
     Route: 048
  4. CLONAZEPAM [Concomitant]
     Dosage: 0.5 MG BID AND 2 MG EVERY NIGHT (QHS)
  5. VITAMIN E [Concomitant]
  6. VITAMIN B6 [Concomitant]
  7. LITHIUM [Concomitant]
     Dosage: QHS
     Route: 048

REACTIONS (1)
  - BLOOD PROLACTIN INCREASED [None]
